FAERS Safety Report 17995476 (Version 3)
Quarter: 2020Q4

REPORT INFORMATION
  Report Type: Spontaneous
  Country: US (occurrence: US)
  Receive Date: 20200708
  Receipt Date: 20201019
  Transmission Date: 20210113
  Serious: No
  Sender: FDA-Public Use
  Company Number: US-ASTRAZENECA-2020SE85435

PATIENT
  Sex: Male
  Weight: 102.5 kg

DRUGS (2)
  1. BYDUREON BCISE [Suspect]
     Active Substance: EXENATIDE
     Indication: BLOOD GLUCOSE INCREASED
     Route: 058
  2. BYDUREON BCISE [Suspect]
     Active Substance: EXENATIDE
     Indication: WEIGHT DECREASED
     Route: 058

REACTIONS (7)
  - Injection site discolouration [Unknown]
  - Product use in unapproved indication [Not Recovered/Not Resolved]
  - Weight decreased [Unknown]
  - Device issue [Unknown]
  - Wrong technique in device usage process [Unknown]
  - Injection site nodule [Recovered/Resolved]
  - Injection site bruising [Recovered/Resolved]
